FAERS Safety Report 26187884 (Version 1)
Quarter: 2025Q4

REPORT INFORMATION
  Report Type: Spontaneous
  Country: CN (occurrence: CN)
  Receive Date: 20251222
  Receipt Date: 20251222
  Transmission Date: 20260119
  Serious: Yes (Life-Threatening, Other)
  Sender: COHERUS
  Company Number: CN-MLMSERVICE-20251210-PI743923-00165-1

PATIENT

DRUGS (7)
  1. TORIPALIMAB [Suspect]
     Active Substance: TORIPALIMAB
     Indication: Bladder transitional cell carcinoma
     Dosage: 3 MG/KG, Q2W, THREE CYCLES
     Route: 041
     Dates: start: 20240318
  2. GEMCITABINE [Suspect]
     Active Substance: GEMCITABINE
     Indication: Bladder transitional cell carcinoma
     Dosage: 1 G, WEEKLY, TOTAL 8 TIMES
     Route: 043
  3. GEMCITABINE [Suspect]
     Active Substance: GEMCITABINE
     Dosage: 1 G, MONTHLY, TOTAL 10 TIMES
     Route: 043
  4. GEMCITABINE [Suspect]
     Active Substance: GEMCITABINE
     Dosage: 1 G
     Route: 013
     Dates: start: 20240318, end: 20240318
  5. GEMCITABINE [Suspect]
     Active Substance: GEMCITABINE
     Dosage: 1000 MG/M2, EVERY 28 DAYS, DAY 1, 8, AND 15, THREE CYCLES
     Route: 041
     Dates: start: 20240318
  6. CISPLATIN [Suspect]
     Active Substance: CISPLATIN
     Indication: Bladder transitional cell carcinoma
     Dosage: 60 MG
     Route: 013
     Dates: start: 20240318
  7. CISPLATIN [Suspect]
     Active Substance: CISPLATIN
     Dosage: 70 MG/M2, EVERY 28 DAYS, DAY 2, THREE CYCLES
     Route: 041
     Dates: start: 20240318

REACTIONS (2)
  - Myelosuppression [Recovering/Resolving]
  - Pyrexia [Recovering/Resolving]
